FAERS Safety Report 24642369 (Version 4)
Quarter: 2025Q1

REPORT INFORMATION
  Report Type: Spontaneous
  Country: AT (occurrence: AT)
  Receive Date: 20241120
  Receipt Date: 20250206
  Transmission Date: 20250409
  Serious: Yes (Hospitalization, Other)
  Sender: SANDOZ
  Company Number: AT-SA-2024SA327315

PATIENT
  Age: 66 Year
  Sex: Female
  Weight: 80 kg

DRUGS (119)
  1. BLEOMYCIN SULFATE [Suspect]
     Active Substance: BLEOMYCIN SULFATE
     Indication: Breast cancer metastatic
     Dosage: 26.850MG QD
     Route: 042
  2. BLEOMYCIN SULFATE [Suspect]
     Active Substance: BLEOMYCIN SULFATE
     Dosage: 26.850MG QD
     Route: 042
  3. CAPECITABINE [Suspect]
     Active Substance: CAPECITABINE
     Indication: Breast cancer metastatic
     Dosage: 2000 MG, QD
     Route: 048
  4. CAPECITABINE [Suspect]
     Active Substance: CAPECITABINE
     Dosage: 3000 MG, QD
     Route: 048
  5. CAPECITABINE [Suspect]
     Active Substance: CAPECITABINE
     Dosage: 3000 MG, QD
     Route: 048
  6. CAPECITABINE [Suspect]
     Active Substance: CAPECITABINE
     Dosage: 3500 MG, QD
     Route: 048
  7. DOCETAXEL [Suspect]
     Active Substance: DOCETAXEL
     Dosage: 134.25 MG, Q3W
     Route: 042
  8. DOCETAXEL [Suspect]
     Active Substance: DOCETAXEL
     Route: 042
  9. DOCETAXEL [Suspect]
     Active Substance: DOCETAXEL
     Dosage: 180 MG, Q3W
     Route: 042
  10. DOCETAXEL [Suspect]
     Active Substance: DOCETAXEL
     Indication: Breast cancer metastatic
     Route: 042
  11. DOCETAXEL [Suspect]
     Active Substance: DOCETAXEL
     Dosage: 190 MG, Q3W
     Route: 042
  12. DOXORUBICIN HYDROCHLORIDE [Suspect]
     Active Substance: DOXORUBICIN HYDROCHLORIDE
     Indication: Breast cancer metastatic
     Dosage: 104.400MG QD
     Route: 042
     Dates: end: 20210608
  13. DENOSUMAB [Suspect]
     Active Substance: DENOSUMAB
     Indication: Breast cancer metastatic
     Route: 042
  14. FASLODEX [Suspect]
     Active Substance: FULVESTRANT
     Route: 058
  15. FASLODEX [Suspect]
     Active Substance: FULVESTRANT
     Indication: Breast cancer metastatic
     Route: 058
  16. KADCYLA [Suspect]
     Active Substance: ADO-TRASTUZUMAB EMTANSINE
     Indication: Breast cancer metastatic
     Dosage: 270 MG, Q3W
     Route: 042
  17. LAPATINIB [Suspect]
     Active Substance: LAPATINIB
     Indication: Breast cancer metastatic
     Dosage: 1250 MG, QD
     Route: 048
  18. NAVELBINE [Suspect]
     Active Substance: VINORELBINE TARTRATE
     Indication: Breast cancer metastatic
     Dosage: 45 MG, Q3W
     Route: 042
  19. NOVALGIN (METAMIZOLE SODIUM) [Suspect]
     Active Substance: METAMIZOLE SODIUM
     Indication: Product used for unknown indication
     Route: 065
  20. NOVALGIN (METAMIZOLE SODIUM) [Suspect]
     Active Substance: METAMIZOLE SODIUM
     Route: 065
     Dates: start: 20210608, end: 20210618
  21. PERJETA [Suspect]
     Active Substance: PERTUZUMAB
     Indication: Breast cancer metastatic
     Dosage: 840 MG, QD
     Route: 042
  22. PERJETA [Suspect]
     Active Substance: PERTUZUMAB
     Dosage: 840 MG, QD
     Route: 042
  23. PERJETA [Suspect]
     Active Substance: PERTUZUMAB
     Dosage: 840 MG, QD
     Route: 042
  24. PERTUZUMAB [Suspect]
     Active Substance: PERTUZUMAB
     Indication: Breast cancer metastatic
     Dosage: 840MG QD (MOST RECENT DOSE PRIOR TO THE EVENT WORSENING OF BRAIN METASTASES: 17MAR2017 MOST RECEN
     Route: 065
  25. VINORELBINE TARTRATE [Suspect]
     Active Substance: VINORELBINE TARTRATE
     Indication: Breast cancer metastatic
     Dosage: 45 MG, Q3W
     Route: 042
  26. TRASTUZUMAB [Suspect]
     Active Substance: TRASTUZUMAB
     Route: 042
  27. TRASTUZUMAB [Suspect]
     Active Substance: TRASTUZUMAB
     Dosage: 408 MG, Q3W
     Route: 042
  28. TRASTUZUMAB [Suspect]
     Active Substance: TRASTUZUMAB
     Dosage: 414 MG, Q3W
     Route: 042
  29. TRASTUZUMAB [Suspect]
     Active Substance: TRASTUZUMAB
     Dosage: 432 MG, QD
     Route: 042
  30. TRASTUZUMAB [Suspect]
     Active Substance: TRASTUZUMAB
     Dosage: 462 MG, Q3W
     Route: 042
  31. TRASTUZUMAB [Suspect]
     Active Substance: TRASTUZUMAB
     Indication: Breast cancer metastatic
     Dosage: 468 MG, QD
     Route: 042
  32. TRASTUZUMAB [Suspect]
     Active Substance: TRASTUZUMAB
     Dosage: 540 MG, Q3W
     Route: 042
  33. TRASTUZUMAB [Suspect]
     Active Substance: TRASTUZUMAB
     Dosage: 560 MG, Q3W
     Route: 042
  34. TRASTUZUMAB [Suspect]
     Active Substance: TRASTUZUMAB
     Dosage: 624 MG, QD
     Route: 042
  35. TRASTUZUMAB DERUXTECAN [Suspect]
     Active Substance: TRASTUZUMAB DERUXTECAN
     Indication: Breast cancer metastatic
     Route: 058
  36. ADO-TRASTUZUMAB EMTANSINE [Suspect]
     Active Substance: ADO-TRASTUZUMAB EMTANSINE
     Indication: Breast cancer metastatic
     Dosage: 270 MG, Q3W
     Route: 042
  37. TUCATINIB [Suspect]
     Active Substance: TUCATINIB
     Indication: Breast cancer metastatic
     Dosage: 300 MG, BID
     Route: 048
  38. TYKERB [Suspect]
     Active Substance: LAPATINIB DITOSYLATE
     Indication: Breast cancer metastatic
     Dosage: 1000 MG, QD
     Route: 048
  39. TYKERB [Suspect]
     Active Substance: LAPATINIB DITOSYLATE
     Dosage: 1250 MG, QD
     Route: 048
  40. Aceclofenac and paracetamol [Concomitant]
     Indication: Product used for unknown indication
     Route: 065
     Dates: start: 20210622, end: 20210622
  41. CARBOXYMETHYLCELLULOSE SODIUM [Concomitant]
     Active Substance: CARBOXYMETHYLCELLULOSE SODIUM
     Indication: Product used for unknown indication
     Route: 065
  42. BETAISODONA [Concomitant]
     Active Substance: POVIDONE-IODINE
     Indication: Product used for unknown indication
     Route: 065
     Dates: start: 20200430, end: 20200515
  43. BUTYLSCOPOLAMINE BROMIDE [Concomitant]
     Active Substance: BUTYLSCOPOLAMINE BROMIDE
     Indication: Product used for unknown indication
     Route: 065
     Dates: start: 20210618, end: 20210618
  44. Cal c vita [Concomitant]
     Indication: Product used for unknown indication
     Route: 065
     Dates: start: 20170203, end: 20210612
  45. Cal c vita [Concomitant]
     Route: 065
     Dates: start: 20170203, end: 20210612
  46. CALCIUM CARBONATE\CHOLECALCIFEROL [Concomitant]
     Active Substance: CALCIUM CARBONATE\CHOLECALCIFEROL
     Indication: Product used for unknown indication
     Route: 065
     Dates: start: 20170203
  47. BETAMETHASONE DIPROPIONATE [Concomitant]
     Active Substance: BETAMETHASONE DIPROPIONATE
     Indication: Product used for unknown indication
     Route: 061
  48. DRONABINOL [Concomitant]
     Active Substance: DRONABINOL
     Indication: Product used for unknown indication
     Route: 065
     Dates: start: 20210608, end: 20210612
  49. DRONABINOL [Concomitant]
     Active Substance: DRONABINOL
     Route: 065
     Dates: start: 20210608, end: 20210612
  50. DRONABINOL [Concomitant]
     Active Substance: DRONABINOL
     Route: 065
     Dates: start: 20210608, end: 20210612
  51. EMEND [Concomitant]
     Active Substance: APREPITANT
     Indication: Product used for unknown indication
     Route: 065
     Dates: start: 20200428, end: 20200430
  52. EUTHYROX [Concomitant]
     Active Substance: LEVOTHYROXINE SODIUM
     Indication: Product used for unknown indication
     Route: 065
     Dates: start: 20170303, end: 20210615
  53. EUTHYROX [Concomitant]
     Active Substance: LEVOTHYROXINE SODIUM
     Route: 065
     Dates: start: 20170303, end: 20210615
  54. EUTHYROX [Concomitant]
     Active Substance: LEVOTHYROXINE SODIUM
     Route: 065
     Dates: start: 20170303, end: 20210615
  55. FENTANYL [Concomitant]
     Active Substance: FENTANYL
     Indication: Product used for unknown indication
     Route: 065
  56. FENTANYL [Concomitant]
     Active Substance: FENTANYL
     Route: 065
  57. FENTANYL [Concomitant]
     Active Substance: FENTANYL
     Route: 065
  58. DEXAMETHASONE [Concomitant]
     Active Substance: DEXAMETHASONE
     Indication: Product used for unknown indication
     Route: 065
     Dates: start: 20170810, end: 20200505
  59. Halset [Concomitant]
     Indication: Product used for unknown indication
     Route: 065
     Dates: start: 20210611, end: 20210615
  60. Halset [Concomitant]
     Route: 065
     Dates: start: 20210611, end: 20210615
  61. Halset [Concomitant]
     Route: 065
     Dates: start: 20210611, end: 20210615
  62. HYDROMORPHONE HYDROCHLORIDE [Concomitant]
     Active Substance: HYDROMORPHONE HYDROCHLORIDE
     Indication: Product used for unknown indication
     Route: 065
     Dates: start: 20210611, end: 20210615
  63. HYDROMORPHONE HYDROCHLORIDE [Concomitant]
     Active Substance: HYDROMORPHONE HYDROCHLORIDE
     Route: 065
     Dates: start: 20210611, end: 20210615
  64. KCL [Concomitant]
     Active Substance: POTASSIUM CHLORIDE
     Indication: Product used for unknown indication
     Route: 065
     Dates: start: 20170429, end: 20200504
  65. Kalioral [Concomitant]
     Indication: Product used for unknown indication
     Route: 065
     Dates: start: 20200427, end: 20200428
  66. LACTULOSE [Concomitant]
     Active Substance: LACTULOSE
     Indication: Product used for unknown indication
     Route: 065
  67. LACTULOSE [Concomitant]
     Active Substance: LACTULOSE
     Route: 065
  68. LACTULOSE [Concomitant]
     Active Substance: LACTULOSE
     Route: 065
  69. Leukichtan [Concomitant]
     Indication: Product used for unknown indication
     Route: 065
     Dates: start: 20200430
  70. EDOXABAN TOSYLATE [Concomitant]
     Active Substance: EDOXABAN TOSYLATE
     Indication: Product used for unknown indication
     Route: 065
     Dates: start: 20200613, end: 20210611
  71. LORAZEPAM [Concomitant]
     Active Substance: LORAZEPAM
     Indication: Product used for unknown indication
     Route: 065
  72. LORAZEPAM [Concomitant]
     Active Substance: LORAZEPAM
     Route: 065
  73. LORAZEPAM [Concomitant]
     Active Substance: LORAZEPAM
     Route: 065
  74. LOVENOX [Concomitant]
     Active Substance: ENOXAPARIN SODIUM
     Indication: Product used for unknown indication
     Route: 065
     Dates: start: 20170224, end: 20171130
  75. SILICON [Concomitant]
     Active Substance: SILICON
     Indication: Product used for unknown indication
     Route: 065
     Dates: start: 20200430, end: 20200515
  76. POLYETHYLENE GLYCOL 3350\POTASSIUM CHLORIDE\SODIUM BICARBONATE\SODIUM [Concomitant]
     Active Substance: POLYETHYLENE GLYCOL 3350\POTASSIUM CHLORIDE\SODIUM BICARBONATE\SODIUM CHLORIDE
     Indication: Product used for unknown indication
     Route: 065
     Dates: start: 20210608, end: 20210616
  77. MORPHINE [Concomitant]
     Active Substance: MORPHINE
     Indication: Product used for unknown indication
     Route: 065
     Dates: start: 20210521, end: 20210623
  78. MORPHINE SULFATE [Concomitant]
     Active Substance: MORPHINE SULFATE
     Indication: Product used for unknown indication
     Route: 065
  79. NERIFORTE [Concomitant]
     Indication: Product used for unknown indication
     Route: 065
     Dates: start: 20200430
  80. Oleovit [Concomitant]
     Indication: Product used for unknown indication
     Route: 065
     Dates: start: 20170329, end: 20210615
  81. ONDANSETRON [Concomitant]
     Active Substance: ONDANSETRON
     Indication: Product used for unknown indication
     Route: 065
     Dates: start: 20210608, end: 20210610
  82. ONDANSETRON [Concomitant]
     Active Substance: ONDANSETRON
     Route: 065
     Dates: start: 20210608, end: 20210610
  83. ONDANSETRON [Concomitant]
     Active Substance: ONDANSETRON
     Route: 065
     Dates: start: 20210611, end: 20210616
  84. ONDANSETRON [Concomitant]
     Active Substance: ONDANSETRON
     Route: 065
     Dates: start: 20210611, end: 20210616
  85. ONDANSETRON [Concomitant]
     Active Substance: ONDANSETRON
     Route: 065
     Dates: start: 20210611, end: 20210616
  86. PANTOPRAZOLE [Concomitant]
     Active Substance: PANTOPRAZOLE
     Indication: Product used for unknown indication
     Route: 065
     Dates: start: 20210317, end: 20210623
  87. PANTOPRAZOLE [Concomitant]
     Active Substance: PANTOPRAZOLE
     Route: 065
     Dates: start: 20210317, end: 20210623
  88. PANTOPRAZOLE [Concomitant]
     Active Substance: PANTOPRAZOLE
     Route: 065
     Dates: start: 20210317, end: 20210623
  89. ACETAMINOPHEN [Concomitant]
     Active Substance: ACETAMINOPHEN
     Indication: Product used for unknown indication
     Route: 065
     Dates: start: 20210622, end: 20210622
  90. ACETAMINOPHEN [Concomitant]
     Active Substance: ACETAMINOPHEN
     Indication: Pseudomonal sepsis
     Route: 065
     Dates: start: 20210622, end: 20210622
  91. ACETAMINOPHEN [Concomitant]
     Active Substance: ACETAMINOPHEN
     Route: 065
     Dates: start: 20210622, end: 20210622
  92. Paracodin [Concomitant]
     Indication: Product used for unknown indication
     Route: 065
     Dates: start: 20210428, end: 20210615
  93. Paspertin [Concomitant]
     Indication: Product used for unknown indication
     Route: 065
     Dates: start: 20210608, end: 20210623
  94. Paspertin [Concomitant]
     Route: 065
     Dates: start: 20210608, end: 20210623
  95. PONVERIDOL [Concomitant]
     Indication: Product used for unknown indication
     Route: 065
  96. PONVERIDOL [Concomitant]
     Route: 065
     Dates: start: 20210612, end: 20210617
  97. PONVERIDOL [Concomitant]
     Route: 065
     Dates: start: 20210612, end: 20210617
  98. PREGABALIN [Concomitant]
     Active Substance: PREGABALIN
     Indication: Product used for unknown indication
     Route: 065
  99. PREGABALIN [Concomitant]
     Active Substance: PREGABALIN
     Route: 065
  100. PREGABALIN [Concomitant]
     Active Substance: PREGABALIN
     Route: 065
  101. SCOTTOPECT [Concomitant]
     Indication: Product used for unknown indication
     Route: 065
     Dates: start: 20210611, end: 20210613
  102. SCOTTOPECT [Concomitant]
     Route: 065
     Dates: start: 20210611, end: 20210613
  103. LEVOFLOXACIN [Concomitant]
     Active Substance: LEVOFLOXACIN
     Indication: Product used for unknown indication
     Route: 065
     Dates: start: 20200506, end: 20200512
  104. TAZOBACTAM [Concomitant]
     Active Substance: TAZOBACTAM
     Indication: Product used for unknown indication
     Route: 065
     Dates: start: 20200423, end: 20200504
  105. Temesta [Concomitant]
     Indication: Product used for unknown indication
     Route: 065
     Dates: start: 20210611, end: 20210621
  106. Temesta [Concomitant]
     Route: 065
     Dates: start: 20210611, end: 20210621
  107. Temesta [Concomitant]
     Route: 065
     Dates: start: 20210611, end: 20210621
  108. VITAMIN C [Concomitant]
     Active Substance: ASCORBIC ACID
     Indication: Product used for unknown indication
     Route: 065
     Dates: start: 20210611, end: 20210614
  109. VITAMIN C [Concomitant]
     Active Substance: ASCORBIC ACID
     Route: 065
     Dates: start: 20210611, end: 20210614
  110. ALPRAZOLAM [Concomitant]
     Active Substance: ALPRAZOLAM
     Indication: Product used for unknown indication
     Route: 065
     Dates: start: 20210613, end: 20210615
  111. ALPRAZOLAM [Concomitant]
     Active Substance: ALPRAZOLAM
     Route: 065
     Dates: start: 20210613, end: 20210615
  112. XGEVA [Concomitant]
     Active Substance: DENOSUMAB
     Indication: Product used for unknown indication
     Route: 065
  113. XGEVA [Concomitant]
     Active Substance: DENOSUMAB
     Route: 065
  114. XGEVA [Concomitant]
     Active Substance: DENOSUMAB
     Route: 065
  115. DROPERIDOL [Concomitant]
     Active Substance: DROPERIDOL
     Indication: Product used for unknown indication
     Route: 065
     Dates: start: 20210612, end: 20210617
  116. ZIEXTENZO [Concomitant]
     Active Substance: PEGFILGRASTIM-BMEZ
     Indication: Product used for unknown indication
     Route: 065
  117. ZIEXTENZO [Concomitant]
     Active Substance: PEGFILGRASTIM-BMEZ
     Route: 065
  118. ZIEXTENZO [Concomitant]
     Active Substance: PEGFILGRASTIM-BMEZ
     Route: 065
  119. ZOFRAN [Concomitant]
     Active Substance: ONDANSETRON HYDROCHLORIDE
     Indication: Product used for unknown indication
     Route: 065
     Dates: start: 20210611, end: 20210616

REACTIONS (22)
  - Pseudomonal sepsis [Recovered/Resolved]
  - Streptococcal sepsis [Recovered/Resolved]
  - Vascular device infection [Recovered/Resolved]
  - Sepsis [Recovered/Resolved]
  - Candida infection [Not Recovered/Not Resolved]
  - Metastases to central nervous system [Not Recovered/Not Resolved]
  - Brain oedema [Not Recovered/Not Resolved]
  - Metastases to lymph nodes [Not Recovered/Not Resolved]
  - Nasal mucosal disorder [Recovered/Resolved]
  - Nail bed inflammation [Unknown]
  - Restlessness [Unknown]
  - Eczema [Not Recovered/Not Resolved]
  - Paronychia [Recovered/Resolved]
  - Skin fissures [Recovered/Resolved]
  - Pleural effusion [Recovered/Resolved]
  - C-reactive protein increased [Not Recovered/Not Resolved]
  - Vomiting [Recovered/Resolved]
  - Back pain [Recovered/Resolved]
  - Nausea [Recovered/Resolved]
  - Fatigue [Not Recovered/Not Resolved]
  - Varicose vein [Not Recovered/Not Resolved]
  - Off label use [Unknown]

NARRATIVE: CASE EVENT DATE: 20191101
